FAERS Safety Report 6741007-9 (Version None)
Quarter: 2010Q2

REPORT INFORMATION
  Report Type: 
  Country: None (occurrence: None)
  Receive Date: 20100526
  Receipt Date: 20100513
  Transmission Date: 20101027
  Serious: Yes (Other)
  Sender: FDA-Public Use
  Company Number: US-ASTRAZENECA-2010SE21981

PATIENT
  Age: 29347 Day
  Sex: Male
  Weight: 117.9 kg

DRUGS (5)
  1. NEXIUM [Suspect]
     Indication: GASTROOESOPHAGEAL REFLUX DISEASE
     Route: 048
     Dates: start: 20050101, end: 20091101
  2. NEXIUM [Suspect]
     Route: 048
     Dates: start: 20091201, end: 20100401
  3. BENICAR HCT [Concomitant]
     Indication: HYPERTENSION
  4. SIMVASTATIN [Concomitant]
     Indication: BLOOD CHOLESTEROL
  5. ACTOS [Concomitant]
     Indication: DIABETES MELLITUS

REACTIONS (10)
  - ABDOMINAL PAIN UPPER [None]
  - BODY HEIGHT DECREASED [None]
  - DECREASED APPETITE [None]
  - DRUG DOSE OMISSION [None]
  - DYSPEPSIA [None]
  - DYSPNOEA [None]
  - GASTROOESOPHAGEAL REFLUX DISEASE [None]
  - INSOMNIA [None]
  - KNEE ARTHROPLASTY [None]
  - WEIGHT INCREASED [None]
